FAERS Safety Report 15726483 (Version 2)
Quarter: 2018Q4

REPORT INFORMATION
  Report Type: Spontaneous
  Country: FR (occurrence: FR)
  Receive Date: 20181217
  Receipt Date: 20181225
  Transmission Date: 20190205
  Serious: Yes (Other)
  Sender: FDA-Public Use
  Company Number: FR-ROCHE-2231036

PATIENT
  Sex: Female

DRUGS (2)
  1. PERJETA [Suspect]
     Active Substance: PERTUZUMAB
     Indication: BREAST CANCER METASTATIC
     Dosage: 420 MG/ 14 ML; VIALS
     Route: 065
     Dates: start: 20181211
  2. TAXOL [Concomitant]
     Active Substance: PACLITAXEL

REACTIONS (3)
  - Ejection fraction decreased [Not Recovered/Not Resolved]
  - Ventricular dyskinesia [Not Recovered/Not Resolved]
  - Hypersensitivity [Recovered/Resolved]
